FAERS Safety Report 19051276 (Version 1)
Quarter: 2021Q1

REPORT INFORMATION
  Report Type: Spontaneous
  Country: US (occurrence: US)
  Receive Date: 20210324
  Receipt Date: 20210324
  Transmission Date: 20210420
  Serious: Yes (Hospitalization)
  Sender: FDA-Public Use
  Company Number: None

PATIENT
  Age: 63 Year
  Sex: Male
  Weight: 113.04 kg

DRUGS (13)
  1. PROCHLORPERAZINE. [Concomitant]
     Active Substance: PROCHLORPERAZINE
  2. PIOGLITAZONE. [Concomitant]
     Active Substance: PIOGLITAZONE
  3. EMPAGLIFLOZIN [Concomitant]
     Active Substance: EMPAGLIFLOZIN
  4. CELECOXIB. [Concomitant]
     Active Substance: CELECOXIB
  5. SILDENAFIL. [Concomitant]
     Active Substance: SILDENAFIL
  6. GLIPIZIDE. [Concomitant]
     Active Substance: GLIPIZIDE
  7. TAMSULOSIN [Concomitant]
     Active Substance: TAMSULOSIN
  8. INLYTA [Suspect]
     Active Substance: AXITINIB
     Indication: RENAL CELL CARCINOMA
     Route: 048
     Dates: start: 20210302, end: 20210315
  9. LIOTHYRONINE [Concomitant]
     Active Substance: LIOTHYRONINE
  10. FOSINOPRIL [Concomitant]
     Active Substance: FOSINOPRIL
  11. PEMBROLIZUMAB. [Suspect]
     Active Substance: PEMBROLIZUMAB
     Indication: RENAL CELL CARCINOMA
     Dosage: ?          OTHER FREQUENCY:EVERY 3 WEEKS;?
     Route: 041
     Dates: start: 20210302, end: 20210315
  12. ROSUVASTATIN. [Concomitant]
     Active Substance: ROSUVASTATIN
  13. ONDANSETRON [Concomitant]
     Active Substance: ONDANSETRON

REACTIONS (6)
  - Unresponsive to stimuli [None]
  - Acute kidney injury [None]
  - Urinary incontinence [None]
  - Tachycardia [None]
  - Blood pressure increased [None]
  - Posterior reversible encephalopathy syndrome [None]

NARRATIVE: CASE EVENT DATE: 20210315
